FAERS Safety Report 14890617 (Version 2)
Quarter: 2018Q2

REPORT INFORMATION
  Report Type: Report from Study
  Country: US (occurrence: US)
  Receive Date: 20180514
  Receipt Date: 20180614
  Transmission Date: 20180711
  Serious: Yes (Hospitalization, Other)
  Sender: FDA-Public Use
  Company Number: US-SHIRE-US201816762

PATIENT
  Age: 60 Year
  Sex: Male

DRUGS (2)
  1. GATTEX [Suspect]
     Active Substance: TEDUGLUTIDE\WATER
     Dosage: 3.75 MG, 1X/DAY:QD
     Route: 058
     Dates: start: 20171117
  2. GATTEX [Suspect]
     Active Substance: TEDUGLUTIDE\WATER
     Indication: SHORT-BOWEL SYNDROME
     Dosage: 3.75 MG, 1X/DAY:QD
     Route: 058
     Dates: start: 20171107

REACTIONS (2)
  - Renal impairment [Unknown]
  - Renal disorder [Unknown]

NARRATIVE: CASE EVENT DATE: 20180301
